FAERS Safety Report 22075008 (Version 1)
Quarter: 2023Q1

REPORT INFORMATION
  Report Type: Spontaneous
  Country: US (occurrence: US)
  Receive Date: 20230308
  Receipt Date: 20230308
  Transmission Date: 20230417
  Serious: No
  Sender: FDA-Public Use
  Company Number: US-ALLERGAN-2214508US

PATIENT
  Age: 72 Year
  Sex: Female
  Weight: 55.79 kg

DRUGS (3)
  1. MESALAMINE [Suspect]
     Active Substance: MESALAMINE
     Indication: Colitis ulcerative
     Dosage: 2 DF, QD
  2. PAXLOVID [Suspect]
     Active Substance: NIRMATRELVIR\RITONAVIR
     Indication: COVID-19
     Dosage: 3 DF, BID
     Dates: start: 202204
  3. CANASA [Concomitant]
     Active Substance: MESALAMINE
     Indication: Colitis ulcerative

REACTIONS (2)
  - Colitis ulcerative [Unknown]
  - COVID-19 [Not Recovered/Not Resolved]

NARRATIVE: CASE EVENT DATE: 20220416
